FAERS Safety Report 6590968-X (Version None)
Quarter: 2010Q1

REPORT INFORMATION
  Report Type: 
  Country: None (occurrence: None)
  Receive Date: 20100219
  Receipt Date: 20100217
  Transmission Date: 20100710
  Serious: Yes (Hospitalization)
  Sender: FDA-Public Use
  Company Number: DE-SANOFI-AVENTIS-2010SA009253

PATIENT
  Age: 28 Year
  Sex: Female
  Weight: 60 kg

DRUGS (4)
  1. ARAVA [Suspect]
     Route: 048
     Dates: start: 20020801, end: 20100211
  2. ORENCIA [Concomitant]
     Dosage: 500 MG ALL FOUR WEEKS
     Dates: start: 20091008, end: 20100211
  3. IBUPROFEN [Concomitant]
     Route: 048
     Dates: start: 20070501, end: 20100211
  4. PANTOZOL [Concomitant]
     Indication: PROPHYLAXIS
     Route: 048
     Dates: start: 20070501, end: 20100211

REACTIONS (2)
  - CONDITION AGGRAVATED [None]
  - RHEUMATOID NODULE REMOVAL [None]
